FAERS Safety Report 23410707 (Version 1)
Quarter: 2024Q1

REPORT INFORMATION
  Report Type: Spontaneous
  Country: US (occurrence: US)
  Receive Date: 20240117
  Receipt Date: 20240117
  Transmission Date: 20240410
  Serious: No
  Sender: FDA-Public Use
  Company Number: US-SK LIFE SCIENCE, INC-SKPVG-2023-000023

PATIENT

DRUGS (6)
  1. XCOPRI [Suspect]
     Active Substance: CENOBAMATE
     Indication: Seizure
     Dosage: 12.5 MILLIGRAM
     Route: 065
     Dates: start: 202101
  2. XCOPRI [Suspect]
     Active Substance: CENOBAMATE
     Dosage: 250MG DAILY DOSE MAINTENANCE PACK
     Route: 065
     Dates: end: 20230102
  3. XCOPRI [Suspect]
     Active Substance: CENOBAMATE
     Dosage: 250 MILLIGRAM
     Route: 065
     Dates: start: 20230118
  4. FYCOMPA [Concomitant]
     Active Substance: PERAMPANEL
     Indication: Epilepsy
     Dosage: UNK UNK, QD, IN THE EVENING
     Route: 065
     Dates: start: 201801
  5. ONFI [Concomitant]
     Active Substance: CLOBAZAM
     Indication: Epilepsy
     Dosage: UNKNOWN
     Route: 065
     Dates: start: 201801
  6. VIMPAT [Concomitant]
     Active Substance: LACOSAMIDE
     Indication: Epilepsy
     Dosage: UNKNOWN
     Route: 065
     Dates: start: 201801

REACTIONS (4)
  - Autism spectrum disorder [Not Recovered/Not Resolved]
  - Product dose omission issue [Recovered/Resolved]
  - Product use issue [Not Recovered/Not Resolved]
  - Febrile infection-related epilepsy syndrome [Not Recovered/Not Resolved]

NARRATIVE: CASE EVENT DATE: 20221001
